FAERS Safety Report 5071819-1 (Version None)
Quarter: 2006Q3

REPORT INFORMATION
  Report Type: 
  Country: None (occurrence: None)
  Receive Date: 20060801
  Receipt Date: 20060720
  Transmission Date: 20061208
  Serious: Yes (Hospitalization)
  Sender: FDA-Public Use
  Company Number: HQWYE365016MAY06

PATIENT
  Age: 66 Year
  Sex: Female

DRUGS (10)
  1. PANTOZOL (PANTOPRAZOLE TABELT,DELAYED RELEASE) [Suspect]
     Indication: DUODENITIS
     Dosage: SEE IMAGE
     Route: 048
     Dates: start: 20020101, end: 20060101
  2. PANTOZOL (PANTOPRAZOLE TABELT,DELAYED RELEASE) [Suspect]
     Indication: DYSPEPSIA
     Dosage: SEE IMAGE
     Route: 048
     Dates: start: 20020101, end: 20060101
  3. PANTOZOL (PANTOPRAZOLE TABELT,DELAYED RELEASE) [Suspect]
     Indication: GASTRITIS
     Dosage: SEE IMAGE
     Route: 048
     Dates: start: 20020101, end: 20060101
  4. PANTOZOL (PANTOPRAZOLE TABELT,DELAYED RELEASE) [Suspect]
     Indication: GASTROOESOPHAGEAL REFLUX DISEASE
     Dosage: SEE IMAGE
     Route: 048
     Dates: start: 20020101, end: 20060101
  5. PANTOZOL (PANTOPRAZOLE TABELT,DELAYED RELEASE) [Suspect]
     Indication: DUODENITIS
     Dosage: SEE IMAGE
     Route: 048
     Dates: start: 19990101
  6. PANTOZOL (PANTOPRAZOLE TABELT,DELAYED RELEASE) [Suspect]
     Indication: DYSPEPSIA
     Dosage: SEE IMAGE
     Route: 048
     Dates: start: 19990101
  7. PANTOZOL (PANTOPRAZOLE TABELT,DELAYED RELEASE) [Suspect]
     Indication: GASTRITIS
     Dosage: SEE IMAGE
     Route: 048
     Dates: start: 19990101
  8. PANTOZOL (PANTOPRAZOLE TABELT,DELAYED RELEASE) [Suspect]
     Indication: GASTROOESOPHAGEAL REFLUX DISEASE
     Dosage: SEE IMAGE
     Route: 048
     Dates: start: 19990101
  9. LIPIDIL [Suspect]
     Indication: DYSLIPIDAEMIA
     Dosage: 160 MG 1X PER 1 DAY ORAL
     Route: 048
  10. LEVOTHYROXINE SODIUM [Concomitant]

REACTIONS (5)
  - CATARACT [None]
  - ESSENTIAL HYPERTENSION [None]
  - LOW TENSION GLAUCOMA [None]
  - OPTIC ATROPHY [None]
  - VISUAL FIELD DEFECT [None]
